FAERS Safety Report 17680697 (Version 2)
Quarter: 2023Q2

REPORT INFORMATION
  Report Type: Spontaneous
  Country: PL (occurrence: PL)
  Receive Date: 20200417
  Receipt Date: 20230612
  Transmission Date: 20230721
  Serious: Yes (Death, Other)
  Sender: FDA-Public Use
  Company Number: PL-EMA-DD-20200409-KUMARSINGH_A-150705

PATIENT
  Age: 61 Year
  Sex: Male

DRUGS (29)
  1. DOCETAXEL [Suspect]
     Active Substance: DOCETAXEL
     Indication: Pain
     Dosage: UNK
     Route: 065
  2. DOCETAXEL [Suspect]
     Active Substance: DOCETAXEL
     Dosage: 10 MG, BID
     Route: 065
  3. ACETAMINOPHEN [Suspect]
     Active Substance: ACETAMINOPHEN
     Indication: Pain
     Dosage: 375 MG, ADHOC UPTO 4 TIMES DAILY
     Route: 065
  4. TRAMADOL HYDROCHLORIDE [Suspect]
     Active Substance: TRAMADOL HYDROCHLORIDE
     Indication: Pain
     Dosage: 37.5 MG, ADHOC UPTO 4 TIMES DAILY
     Route: 065
  5. KETOPROFEN [Suspect]
     Active Substance: KETOPROFEN
     Indication: Pain
     Dosage: 100 MILLIGRAM, BID
     Dates: start: 201603
  6. KETOPROFEN [Suspect]
     Active Substance: KETOPROFEN
     Dosage: 200 MILLIGRAM, QD
  7. KETOPROFEN [Suspect]
     Active Substance: KETOPROFEN
     Dosage: 100 MILLIGRAM, BID -MAR-2016
     Dates: start: 201605
  8. GABAPENTIN [Suspect]
     Active Substance: GABAPENTIN
     Dosage: 0.3 GRAM, TID
     Dates: start: 201603, end: 2016
  9. GABAPENTIN [Suspect]
     Active Substance: GABAPENTIN
     Dosage: 900 MILLIGRAM
  10. GABAPENTIN [Suspect]
     Active Substance: GABAPENTIN
     Dosage: 150 MILLIGRAM, QD
  11. GABAPENTIN [Suspect]
     Active Substance: GABAPENTIN
     Dosage: 300 MILLIGRAM
  12. GABAPENTIN [Suspect]
     Active Substance: GABAPENTIN
  13. LEUPROLIDE ACETATE [Suspect]
     Active Substance: LEUPROLIDE ACETATE
     Indication: Prostate cancer
     Dosage: UNK, EVERY SIX MONTHS
     Route: 065
  14. LEUPROLIDE ACETATE [Suspect]
     Active Substance: LEUPROLIDE ACETATE
     Dosage: UNK, Q3MO, ONCE IN 3 MONTHS
     Route: 065
  15. FENTANYL [Suspect]
     Active Substance: FENTANYL
     Indication: Pain
     Dosage: 200 UG/HR, Q72H, ONCE IN 3 DAYS
     Route: 065
  16. MORPHINE SULFATE [Suspect]
     Active Substance: MORPHINE SULFATE
     Indication: Pain
     Dosage: 0.02 GRAM
     Dates: start: 201603
  17. BICALUTAMIDE [Suspect]
     Active Substance: BICALUTAMIDE
     Indication: Prostate cancer
     Dosage: 50 MILLIGRAM, QD
     Dates: start: 201603
  18. DENOSUMAB [Suspect]
     Active Substance: DENOSUMAB
     Dosage: 120 MILLIGRAM
     Route: 058
     Dates: start: 201603
  19. METAMIZOLE [Concomitant]
     Active Substance: METAMIZOLE
     Indication: Product used for unknown indication
     Dosage: UNK
  20. TAPENTADOL [Concomitant]
     Active Substance: TAPENTADOL
     Indication: Product used for unknown indication
     Dosage: 75 MILLIGRAM
  21. TAPENTADOL [Concomitant]
     Active Substance: TAPENTADOL
     Dosage: 150 MILLIGRAM, QD
  22. TAPENTADOL [Concomitant]
     Active Substance: TAPENTADOL
     Dosage: 100 MILLIGRAM, QD
  23. TAPENTADOL [Concomitant]
     Active Substance: TAPENTADOL
     Dosage: 0.1 MILLIGRAM, QD
  24. PREGABALIN [Concomitant]
     Active Substance: PREGABALIN
     Indication: Product used for unknown indication
     Dosage: 0.15 GRAM, QD
  25. PREGABALIN [Concomitant]
     Active Substance: PREGABALIN
     Dosage: 0.15 GRAM, BID
  26. ABIRATERONE [Concomitant]
     Active Substance: ABIRATERONE
     Indication: Product used for unknown indication
     Dosage: UNK
  27. IRON [Concomitant]
     Active Substance: IRON
     Indication: Product used for unknown indication
     Dosage: UNK
  28. NIMESULIDE [Concomitant]
     Active Substance: NIMESULIDE
     Indication: Product used for unknown indication
     Dosage: UNK
  29. DEXKETOPROFEN [Concomitant]
     Active Substance: DEXKETOPROFEN
     Indication: Product used for unknown indication
     Dosage: 1 DOSAGE FORM, TID

REACTIONS (17)
  - Polyneuropathy [Fatal]
  - Confusional state [Fatal]
  - Constipation [Fatal]
  - Chronic kidney disease [Fatal]
  - Dermatitis allergic [Fatal]
  - Decreased appetite [Fatal]
  - Allodynia [Fatal]
  - Quality of life decreased [Fatal]
  - Malignant neoplasm progression [Unknown]
  - Prostate cancer [Unknown]
  - Metastases to lung [Unknown]
  - Toxicity to various agents [Recovered/Resolved]
  - Polyneuropathy in malignant disease [Unknown]
  - Hyperaesthesia [Recovered/Resolved]
  - Drug dependence [Unknown]
  - Anaemia [Unknown]
  - Metastases to bone [Unknown]

NARRATIVE: CASE EVENT DATE: 20160101
